FAERS Safety Report 24749477 (Version 1)
Quarter: 2024Q4

REPORT INFORMATION
  Report Type: Spontaneous
  Country: US (occurrence: US)
  Receive Date: 20241218
  Receipt Date: 20241218
  Transmission Date: 20250114
  Serious: Yes (Other)
  Sender: ELI LILLY AND COMPANY
  Company Number: US-ELI_LILLY_AND_COMPANY-US202412008540

PATIENT
  Age: 39 Year
  Sex: Female

DRUGS (2)
  1. BASAGLAR [Suspect]
     Active Substance: INSULIN GLARGINE
     Indication: Diabetes mellitus
     Dosage: 30 U, DAILY (25-30)
     Route: 058
  2. HUMALOG [Suspect]
     Active Substance: INSULIN LISPRO
     Indication: Diabetes mellitus
     Dosage: UNK UNK, UNKNOWN
     Route: 058

REACTIONS (8)
  - Retinal haemorrhage [Unknown]
  - Myocardial infarction [Unknown]
  - Neoplasm malignant [Unknown]
  - Stress [Unknown]
  - Neuropathy peripheral [Unknown]
  - Accidental underdose [Unknown]
  - Cataract [Unknown]
  - Injection site scar [Unknown]

NARRATIVE: CASE EVENT DATE: 20110101
